FAERS Safety Report 8014802-6 (Version None)
Quarter: 2011Q4

REPORT INFORMATION
  Report Type: 
  Country: None (occurrence: None)
  Receive Date: 20111229
  Receipt Date: 20111220
  Transmission Date: 20120403
  Serious: Yes (Death, Life-Threatening, Other)
  Sender: FDA-Public Use
  Company Number: JP-AMGEN-JPNCT2011062194

PATIENT
  Age: 52 Year
  Sex: Male
  Weight: 46 kg

DRUGS (4)
  1. PANITUMUMAB [Suspect]
     Indication: COLORECTAL CANCER
     Dosage: 275 MG, Q2WK
     Route: 041
     Dates: start: 20110322, end: 20110322
  2. KYTRIL [Concomitant]
     Indication: PROPHYLAXIS OF NAUSEA AND VOMITING
     Route: 041
     Dates: start: 20110322, end: 20110322
  3. CAMPTOSAR [Concomitant]
     Indication: COLORECTAL CANCER
     Route: 041
     Dates: start: 20110322, end: 20110322
  4. DECADRON [Concomitant]
     Indication: PROPHYLAXIS OF NAUSEA AND VOMITING
     Route: 041
     Dates: start: 20110322, end: 20110322

REACTIONS (3)
  - SHOCK [None]
  - INFECTIOUS PERITONITIS [None]
  - FEBRILE NEUTROPENIA [None]
